FAERS Safety Report 23674945 (Version 2)
Quarter: 2024Q2

REPORT INFORMATION
  Report Type: Spontaneous
  Country: US (occurrence: US)
  Receive Date: 20240326
  Receipt Date: 20240418
  Transmission Date: 20240715
  Serious: Yes (Other)
  Sender: FDA-Public Use
  Company Number: US-BAUSCHBL-2024BNL003672

PATIENT
  Age: 68 Year
  Sex: Female

DRUGS (1)
  1. XIIDRA [Suspect]
     Active Substance: LIFITEGRAST
     Indication: Product used for unknown indication
     Route: 047
     Dates: start: 20230127

REACTIONS (7)
  - Surgery [Unknown]
  - Eye irritation [Unknown]
  - Vision blurred [Unknown]
  - Product packaging quantity issue [Unknown]
  - Product container seal issue [Unknown]
  - Product use issue [Unknown]
  - Product use complaint [Unknown]
